FAERS Safety Report 12613783 (Version 1)
Quarter: 2016Q3

REPORT INFORMATION
  Report Type: Spontaneous
  Country: US (occurrence: US)
  Receive Date: 20160802
  Receipt Date: 20160802
  Transmission Date: 20161109
  Serious: No
  Sender: FDA-Public Use
  Company Number: US-BAYER-2016-146426

PATIENT
  Sex: Male

DRUGS (1)
  1. FINACEA [Suspect]
     Active Substance: AZELAIC ACID
     Indication: ROSACEA
     Dosage: UNK, BID DAILY
     Route: 061
     Dates: start: 201607

REACTIONS (1)
  - Pain of skin [None]

NARRATIVE: CASE EVENT DATE: 201607
